FAERS Safety Report 12276932 (Version 4)
Quarter: 2016Q4

REPORT INFORMATION
  Report Type: Spontaneous
  Country: US (occurrence: US)
  Receive Date: 20160418
  Receipt Date: 20161115
  Transmission Date: 20170207
  Serious: Yes (Other)
  Sender: FDA-Public Use
  Company Number: US-GLAXOSMITHKLINE-US2016GSK046697

PATIENT
  Age: 68 Year
  Sex: Male

DRUGS (2)
  1. TANZEUM [Suspect]
     Active Substance: ALBIGLUTIDE
     Indication: TYPE 2 DIABETES MELLITUS
     Dosage: 30 MG, WE
     Route: 042
     Dates: start: 20160321
  2. TANZEUM [Suspect]
     Active Substance: ALBIGLUTIDE
     Dosage: 30 MG, WE
     Route: 042

REACTIONS (7)
  - Blood glucose increased [Recovered/Resolved]
  - Dyspnoea exertional [Unknown]
  - Prostate cancer [Unknown]
  - Underdose [Unknown]
  - Drug dose omission [Unknown]
  - Speech disorder [Unknown]
  - Device use error [Unknown]

NARRATIVE: CASE EVENT DATE: 2016
